FAERS Safety Report 4518911-5 (Version None)
Quarter: 2004Q4

REPORT INFORMATION
  Report Type: 
  Country: None (occurrence: None)
  Receive Date: 20041201
  Receipt Date: 20041123
  Transmission Date: 20050328
  Serious: Yes (Death)
  Sender: FDA-Public Use
  Company Number: DEU-2004-0001118

PATIENT
  Age: 59 Year
  Sex: Male
  Weight: 60 kg

DRUGS (2)
  1. PALLADON  (HYDROMORPHONE HCL CR ) [Suspect]
     Indication: CANCER PAIN
     Dosage: 4 MG, BID, ORAL
     Route: 048
     Dates: start: 20040413, end: 20040507
  2. INDOMETHACIN [Concomitant]

REACTIONS (1)
  - DEATH [None]
